FAERS Safety Report 4924289-5 (Version None)
Quarter: 2006Q1

REPORT INFORMATION
  Report Type: 
  Country: None (occurrence: None)
  Receive Date: 20060227
  Receipt Date: 20060215
  Transmission Date: 20060701
  Serious: Yes (Other)
  Sender: FDA-Public Use
  Company Number: US-BRISTOL-MYERS SQUIBB COMPANY-13284484

PATIENT
  Age: 38 Year
  Sex: Male
  Weight: 118 kg

DRUGS (3)
  1. ABILIFY [Suspect]
     Indication: BIPOLAR DISORDER
     Route: 048
     Dates: start: 20050213, end: 20050214
  2. ULTRAM [Concomitant]
  3. OXYCONTIN [Concomitant]

REACTIONS (19)
  - BALANCE DISORDER [None]
  - CONFUSIONAL STATE [None]
  - CONSTIPATION [None]
  - DIZZINESS [None]
  - DYSKINESIA [None]
  - DYSPHEMIA [None]
  - HYPERHIDROSIS [None]
  - INCONTINENCE [None]
  - MIGRAINE [None]
  - MUSCLE SPASMS [None]
  - MUSCULAR WEAKNESS [None]
  - MUSCULOSKELETAL PAIN [None]
  - NAUSEA [None]
  - POLYDIPSIA [None]
  - PSYCHOMOTOR HYPERACTIVITY [None]
  - RESTLESSNESS [None]
  - SPEECH DISORDER [None]
  - URINE OUTPUT INCREASED [None]
  - VISUAL DISTURBANCE [None]
